FAERS Safety Report 5154930-6 (Version None)
Quarter: 2006Q4

REPORT INFORMATION
  Report Type: 
  Country: None (occurrence: None)
  Receive Date: 20061120
  Receipt Date: 20061120
  Transmission Date: 20070319
  Serious: Yes (Other)
  Sender: FDA-Public Use
  Company Number: None

PATIENT
  Age: 37 Year
  Sex: Female
  Weight: 86.1834 kg

DRUGS (4)
  1. FOOD LION PAIN RELIEF 500 MG FOOD LION [Suspect]
     Indication: HEADACHE
     Dosage: 2 TABS FOR HEADACHE ONLY AS NEEDED PO
     Route: 048
     Dates: start: 20061023, end: 20061023
  2. FOOD LION PAIN RELIEF 500 MG FOOD LION [Suspect]
     Indication: MALAISE
     Dosage: 2 TABS FOR HEADACHE ONLY AS NEEDED PO
     Route: 048
     Dates: start: 20061023, end: 20061023
  3. FOOD LION PAIN RELIEF 500 MG FOOD LION [Suspect]
     Indication: HEADACHE
     Dosage: 2 TABS FOR HEADACHE ONLY AS NEEDED PO
     Route: 048
     Dates: start: 20061029, end: 20061029
  4. FOOD LION PAIN RELIEF 500 MG FOOD LION [Suspect]
     Indication: MALAISE
     Dosage: 2 TABS FOR HEADACHE ONLY AS NEEDED PO
     Route: 048
     Dates: start: 20061029, end: 20061029

REACTIONS (6)
  - ABDOMINAL PAIN UPPER [None]
  - BEDRIDDEN [None]
  - DIARRHOEA [None]
  - PHARMACEUTICAL PRODUCT COMPLAINT [None]
  - STOMACH DISCOMFORT [None]
  - VOMITING [None]
